FAERS Safety Report 24044610 (Version 1)
Quarter: 2024Q3

REPORT INFORMATION
  Report Type: Report from Study
  Country: CA (occurrence: CA)
  Receive Date: 20240703
  Receipt Date: 20240703
  Transmission Date: 20241016
  Serious: Yes (Other)
  Sender: SANDOZ
  Company Number: CA-002147023-NVSC2022CA155568

PATIENT
  Age: 70 Year
  Sex: Female

DRUGS (1)
  1. HYRIMOZ [Suspect]
     Active Substance: ADALIMUMAB-ADAZ
     Indication: Crohn^s disease
     Dosage: 40 MG, QW (DOSAGE: 40MG)
     Route: 058
     Dates: start: 20220119

REACTIONS (11)
  - Crohn^s disease [Unknown]
  - Injection site discharge [Unknown]
  - Injection site discomfort [Unknown]
  - Injection site pain [Unknown]
  - Erythema nodosum [Unknown]
  - Abdominal pain [Unknown]
  - Sensitivity to weather change [Unknown]
  - Wrong technique in device usage process [Unknown]
  - Incorrect dose administered [Unknown]
  - Product use issue [Unknown]
  - Off label use [Unknown]

NARRATIVE: CASE EVENT DATE: 20220706
